FAERS Safety Report 26147345 (Version 1)
Quarter: 2025Q4

REPORT INFORMATION
  Report Type: Spontaneous
  Country: US (occurrence: US)
  Receive Date: 20251211
  Receipt Date: 20251211
  Transmission Date: 20260118
  Serious: Yes (Other)
  Sender: ELI LILLY AND COMPANY
  Company Number: US-ELI_LILLY_AND_COMPANY-US202512008540

PATIENT
  Age: 36 Year
  Sex: Female

DRUGS (8)
  1. HUMULIN R U-500 [Suspect]
     Active Substance: INSULIN HUMAN
     Indication: Diabetes mellitus
     Dosage: 80 U, EACH MORNING
     Route: 065
     Dates: start: 202308, end: 202408
  2. HUMULIN R U-500 [Suspect]
     Active Substance: INSULIN HUMAN
     Dosage: 70 U, EACH EVENING (DINNER)
     Route: 065
     Dates: start: 202308, end: 202408
  3. HUMULIN R U-500 [Suspect]
     Active Substance: INSULIN HUMAN
     Dosage: 60 U, EACH EVENING (BED TIME)
     Route: 065
     Dates: start: 202308, end: 202408
  4. HUMALOG [Suspect]
     Active Substance: INSULIN LISPRO
     Indication: Diabetes mellitus
     Dosage: UNK UNK, UNKNOWN
     Route: 065
     Dates: start: 20251202
  5. NOVOLIN 70/30 [Concomitant]
     Active Substance: INSULIN HUMAN
     Indication: Diabetes mellitus
     Dosage: UNK UNK, UNKNOWN
     Route: 065
     Dates: start: 202408, end: 202508
  6. HUMULIN R [Concomitant]
     Active Substance: INSULIN HUMAN
     Indication: Diabetes mellitus
     Dosage: 80 U, EACH MORNING
     Route: 065
     Dates: start: 202508
  7. HUMULIN R [Concomitant]
     Active Substance: INSULIN HUMAN
     Dosage: 70 U, EACH EVENING (DINNER)
     Route: 065
     Dates: start: 202508
  8. HUMULIN R [Concomitant]
     Active Substance: INSULIN HUMAN
     Dosage: 70 U, EACH EVENING (BEDTIME)
     Route: 065
     Dates: start: 202508

REACTIONS (3)
  - Retinal detachment [Unknown]
  - Blood glucose increased [Unknown]
  - Accidental underdose [Unknown]
